FAERS Safety Report 15928488 (Version 2)
Quarter: 2019Q2

REPORT INFORMATION
  Report Type: Spontaneous
  Country: US (occurrence: US)
  Receive Date: 20190206
  Receipt Date: 20190416
  Transmission Date: 20190711
  Serious: Yes (Death, Hospitalization, Other)
  Sender: FDA-Public Use
  Company Number: US-ASTRAZENECA-2018SF64632

PATIENT
  Age: 22871 Day
  Sex: Female

DRUGS (18)
  1. PRILOSEC [Suspect]
     Active Substance: OMEPRAZOLE MAGNESIUM
     Route: 048
     Dates: start: 2012, end: 2016
  2. FUROSEMIDE. [Concomitant]
     Active Substance: FUROSEMIDE
  3. METOLAZONE. [Concomitant]
     Active Substance: METOLAZONE
  4. ALBUTEROL. [Concomitant]
     Active Substance: ALBUTEROL
  5. LEVOTHYROXINE. [Concomitant]
     Active Substance: LEVOTHYROXINE
  6. TRAMADOL. [Concomitant]
     Active Substance: TRAMADOL
  7. LEVOTHYROXINE. [Concomitant]
     Active Substance: LEVOTHYROXINE
  8. CALCIUM ACETATE. [Concomitant]
     Active Substance: CALCIUM ACETATE
  9. ERGOCALCIFEROL. [Concomitant]
     Active Substance: ERGOCALCIFEROL
  10. AMLODIPINE [Concomitant]
     Active Substance: AMLODIPINE BESYLATE
  11. ZOLPIDEM [Concomitant]
     Active Substance: ZOLPIDEM\ZOLPIDEM TARTRATE
  12. CHLORTHALIDONE. [Concomitant]
     Active Substance: CHLORTHALIDONE
  13. TYLENOL [Concomitant]
     Active Substance: ACETAMINOPHEN
  14. ACETAMINOPHEN. [Concomitant]
     Active Substance: ACETAMINOPHEN
  15. DULOXETINE. [Concomitant]
     Active Substance: DULOXETINE
  16. HYDROXYZINE [Concomitant]
     Active Substance: HYDROXYZINE HYDROCHLORIDE
  17. PROTONIX [Suspect]
     Active Substance: PANTOPRAZOLE SODIUM
     Route: 065
     Dates: start: 2012, end: 2016
  18. METOPROLOL. [Concomitant]
     Active Substance: METOPROLOL

REACTIONS (5)
  - End stage renal disease [Unknown]
  - Death [Fatal]
  - Renal failure [Unknown]
  - Acute kidney injury [Unknown]
  - Chronic kidney disease [Unknown]

NARRATIVE: CASE EVENT DATE: 20160311
